FAERS Safety Report 18204479 (Version 1)
Quarter: 2020Q3

REPORT INFORMATION
  Report Type: Other
  Country: FR (occurrence: FR)
  Receive Date: 20200828
  Receipt Date: 20200828
  Transmission Date: 20201103
  Serious: Yes (Hospitalization)
  Sender: FDA-Public Use
  Company Number: FR-CADILA HEALTHCARE LIMITED-FR-ZYDUS-055065

PATIENT

DRUGS (1)
  1. ELETRIPTAN. [Suspect]
     Active Substance: ELETRIPTAN
     Indication: MIGRAINE
     Dosage: 40 MILLIGRAM, PRN
     Route: 048
     Dates: start: 20200414, end: 20200414

REACTIONS (4)
  - Accidental overdose [Recovered/Resolved]
  - Tachycardia [Recovered/Resolved]
  - Throat tightness [Recovered/Resolved]
  - Vertigo [Recovered/Resolved]

NARRATIVE: CASE EVENT DATE: 20200414
